FAERS Safety Report 4876365-3 (Version None)
Quarter: 2006Q1

REPORT INFORMATION
  Report Type: 
  Country: None (occurrence: None)
  Receive Date: 20060110
  Receipt Date: 20051124
  Transmission Date: 20060701
  Serious: Yes (Disabling, Congenital Anomaly, Other)
  Sender: FDA-Public Use
  Company Number: PHBS2005JP17403

PATIENT
  Age: 1 Day
  Sex: Male
  Weight: 1.01 kg

DRUGS (2)
  1. TOFRANIL [Suspect]
     Route: 064
  2. DEPAS [Suspect]
     Route: 064

REACTIONS (5)
  - APNOEIC ATTACK [None]
  - CEREBRAL PALSY [None]
  - CIRCULATORY FAILURE NEONATAL [None]
  - DRUG EXPOSURE DURING PREGNANCY [None]
  - PALLOR [None]
